FAERS Safety Report 8617436-5 (Version None)
Quarter: 2012Q3

REPORT INFORMATION
  Report Type: 
  Country: None (occurrence: None)
  Receive Date: 20120824
  Receipt Date: 20120716
  Transmission Date: 20120928
  Serious: No
  Sender: FDA-Public Use
  Company Number: US-009507513-1207USA000431

PATIENT

DRUGS (5)
  1. ESTRACE [Concomitant]
  2. ZIOPTAN [Suspect]
     Indication: GLAUCOMA
     Dosage: UNK
     Route: 047
     Dates: start: 20120701, end: 20120703
  3. COMBIGAN [Concomitant]
  4. ARMOUR THYROID TABLETS [Concomitant]
  5. HYDROCHLOROTHIAZIDE [Concomitant]

REACTIONS (4)
  - EYE PRURITUS [None]
  - EYE PAIN [None]
  - EYE IRRITATION [None]
  - OCULAR HYPERAEMIA [None]
